FAERS Safety Report 20124473 (Version 1)
Quarter: 2021Q4

REPORT INFORMATION
  Report Type: Spontaneous
  Country: US (occurrence: None)
  Receive Date: 20211126
  Receipt Date: 20211126
  Transmission Date: 20220303
  Serious: No
  Sender: FDA-Public Use
  Company Number: None

PATIENT
  Age: 22 Year
  Sex: Female
  Weight: 53 kg

DRUGS (1)
  1. CASIRIVIMAB\IMDEVIMAB [Suspect]
     Active Substance: CASIRIVIMAB\IMDEVIMAB
     Dosage: FREQUENCY : ONCE;?
     Route: 042
     Dates: start: 20211119, end: 20211119

REACTIONS (4)
  - Flushing [None]
  - Tachycardia [None]
  - Abdominal discomfort [None]
  - Dyspnoea [None]

NARRATIVE: CASE EVENT DATE: 20211119
